FAERS Safety Report 9291626 (Version 1)
Quarter: 2013Q2

REPORT INFORMATION
  Report Type: Spontaneous
  Country: US (occurrence: US)
  Receive Date: 20130515
  Receipt Date: 20130515
  Transmission Date: 20140414
  Serious: No
  Sender: FDA-Public Use
  Company Number: US-ASTRAZENECA-2013SE31462

PATIENT
  Age: 54 Year
  Sex: Female
  Weight: 83.9 kg

DRUGS (5)
  1. BRILINTA [Suspect]
     Indication: CARDIOVASCULAR EVENT PROPHYLAXIS
     Route: 048
     Dates: start: 20130214
  2. BENAZEPRIL [Concomitant]
     Route: 048
     Dates: start: 20130214
  3. CARVEDILOL [Concomitant]
     Route: 048
     Dates: start: 20130214
  4. ATORVASTATIN [Concomitant]
     Route: 048
     Dates: start: 20130214
  5. ZOLOFT [Concomitant]
     Route: 048
     Dates: start: 2003

REACTIONS (2)
  - Pseudofolliculitis barbae [Unknown]
  - Skin haemorrhage [Unknown]
